FAERS Safety Report 15366217 (Version 2)
Quarter: 2018Q3

REPORT INFORMATION
  Report Type: Spontaneous
  Country: DE (occurrence: DE)
  Receive Date: 20180910
  Receipt Date: 20180924
  Transmission Date: 20181010
  Serious: Yes (Hospitalization, Other)
  Sender: FDA-Public Use
  Company Number: DE-CELGENEUS-DEU-20180900747

PATIENT
  Age: 65 Year
  Sex: Female

DRUGS (17)
  1. REVLIMID [Suspect]
     Active Substance: LENALIDOMIDE
     Indication: PRODUCT USED FOR UNKNOWN INDICATION
     Route: 048
     Dates: start: 201709, end: 201802
  2. BORTEZOMIB. [Concomitant]
     Active Substance: BORTEZOMIB
     Route: 065
     Dates: start: 201503, end: 201506
  3. DARATUMUMAB [Concomitant]
     Active Substance: DARATUMUMAB
     Indication: PRODUCT USED FOR UNKNOWN INDICATION
     Route: 065
  4. BORTEZOMIB. [Concomitant]
     Active Substance: BORTEZOMIB
     Route: 065
     Dates: start: 200603
  5. BORTEZOMIB. [Concomitant]
     Active Substance: BORTEZOMIB
     Route: 065
     Dates: start: 200610
  6. DEXAMETHASONE. [Concomitant]
     Active Substance: DEXAMETHASONE
     Indication: PRODUCT USED FOR UNKNOWN INDICATION
     Route: 065
     Dates: start: 201709, end: 201802
  7. ATACAND [Concomitant]
     Active Substance: CANDESARTAN CILEXETIL
     Indication: HYPERTENSION
     Dosage: 8/12.5?0?8
     Route: 065
  8. DEXAMETHASONE. [Concomitant]
     Active Substance: DEXAMETHASONE
     Route: 065
     Dates: start: 201804
  9. BORTEZOMIB. [Concomitant]
     Active Substance: BORTEZOMIB
     Route: 065
     Dates: start: 201201, end: 201206
  10. REVLIMID [Suspect]
     Active Substance: LENALIDOMIDE
     Route: 048
     Dates: start: 201702, end: 201708
  11. BORTEZOMIB. [Concomitant]
     Active Substance: BORTEZOMIB
     Indication: PRODUCT USED FOR UNKNOWN INDICATION
     Route: 065
  12. BORTEZOMIB. [Concomitant]
     Active Substance: BORTEZOMIB
     Route: 065
     Dates: start: 201804
  13. DARATUMUMAB [Concomitant]
     Active Substance: DARATUMUMAB
     Route: 065
     Dates: start: 201804
  14. DEXAMETHASONE. [Concomitant]
     Active Substance: DEXAMETHASONE
     Route: 065
     Dates: start: 201702, end: 201708
  15. L?THYROXIN [Concomitant]
     Active Substance: LEVOTHYROXINE SODIUM
     Indication: HYPOTHYROIDISM
     Route: 065
  16. DEXAMETHASONE. [Concomitant]
     Active Substance: DEXAMETHASONE
     Route: 065
     Dates: start: 201503, end: 201506
  17. DEXAMETHASONE. [Concomitant]
     Active Substance: DEXAMETHASONE
     Route: 065
     Dates: start: 200603

REACTIONS (1)
  - Transitional cell carcinoma [Unknown]

NARRATIVE: CASE EVENT DATE: 201807
